FAERS Safety Report 17197673 (Version 1)
Quarter: 2019Q4

REPORT INFORMATION
  Report Type: Spontaneous
  Country: US (occurrence: US)
  Receive Date: 20191224
  Receipt Date: 20191224
  Transmission Date: 20200122
  Serious: Yes (Death, Hospitalization)
  Sender: FDA-Public Use
  Company Number: US-TEVA-2019-US-1157566

PATIENT
  Age: 65 Year
  Sex: Female

DRUGS (3)
  1. VALPROIC ACID. [Suspect]
     Active Substance: VALPROIC ACID
     Route: 065
  2. RANOLAZINE. [Suspect]
     Active Substance: RANOLAZINE
     Dosage: INGESTED 50 OF HER BROTHER^S 1000MG RANOLAZINE TABLETS
     Route: 048
  3. QUETIAPINE. [Suspect]
     Active Substance: QUETIAPINE
     Route: 065

REACTIONS (10)
  - Intentional overdose [Fatal]
  - Toxicity to various agents [Fatal]
  - Somnolence [Unknown]
  - Seizure like phenomena [Unknown]
  - Blood pressure systolic decreased [Unknown]
  - Bradycardia [Unknown]
  - Shock [Unknown]
  - Pulmonary oedema [Unknown]
  - Hyperhidrosis [Unknown]
  - Completed suicide [Fatal]
